FAERS Safety Report 7807035-7 (Version None)
Quarter: 2011Q4

REPORT INFORMATION
  Report Type: 
  Country: None (occurrence: None)
  Receive Date: 20111011
  Receipt Date: 20111004
  Transmission Date: 20120403
  Serious: Yes (Other)
  Sender: FDA-Public Use
  Company Number: DE-TEVA-292404GER

PATIENT
  Sex: Female

DRUGS (1)
  1. CARBIDOPA AND LEVODOPA [Suspect]
     Indication: PARKINSON'S DISEASE
     Dosage: 1 DOSAGE FORMS; 1 DF = 100 MG LEVODOPA + 25 MG CARBIDOPA
     Route: 048
     Dates: start: 20100701

REACTIONS (3)
  - BASAL CELL CARCINOMA [None]
  - BOWEN'S DISEASE [None]
  - MELANOCYTIC NAEVUS [None]
